FAERS Safety Report 7659092-9 (Version None)
Quarter: 2011Q3

REPORT INFORMATION
  Report Type: 
  Country: None (occurrence: None)
  Receive Date: 20110805
  Receipt Date: 20110729
  Transmission Date: 20111222
  Serious: Yes (Other)
  Sender: FDA-Public Use
  Company Number: US-GLAXOSMITHKLINE-A0762839A

PATIENT
  Age: 81 Year
  Sex: Male

DRUGS (4)
  1. ADVAIR DISKUS 100/50 [Suspect]
     Indication: ASTHMA
     Dosage: 1PUFF TWICE PER DAY
     Route: 055
  2. ALBUTEROL SULFATE AUTOHALER [Concomitant]
  3. PROVENTIL [Concomitant]
  4. LEVAQUIN [Concomitant]

REACTIONS (5)
  - COUGH [None]
  - MACULAR DEGENERATION [None]
  - BRONCHITIS [None]
  - ILL-DEFINED DISORDER [None]
  - CHEST DISCOMFORT [None]
